FAERS Safety Report 24044809 (Version 1)
Quarter: 2024Q3

REPORT INFORMATION
  Report Type: Spontaneous
  Country: FR (occurrence: FR)
  Receive Date: 20240703
  Receipt Date: 20240703
  Transmission Date: 20241016
  Serious: Yes (Hospitalization, Other)
  Sender: RANBAXY
  Company Number: FR-SUN PHARMACEUTICAL INDUSTRIES LTD-2024R1-454278

PATIENT
  Age: 33 Year
  Sex: Male

DRUGS (6)
  1. PALIPERIDONE [Suspect]
     Active Substance: PALIPERIDONE
     Indication: Bipolar disorder
     Dosage: UNK
     Route: 065
  2. PALIPERIDONE [Suspect]
     Active Substance: PALIPERIDONE
     Indication: Mental disorder
  3. CYAMEMAZINE [Suspect]
     Active Substance: CYAMEMAZINE
     Indication: Bipolar disorder
     Dosage: UNK
     Route: 065
  4. CYAMEMAZINE [Suspect]
     Active Substance: CYAMEMAZINE
     Indication: Mental disorder
  5. N-ETHYLHEXEDRONE [Suspect]
     Active Substance: N-ETHYLHEXEDRONE
     Indication: Bipolar disorder
     Dosage: UNK
     Route: 065
  6. N-ETHYLHEXEDRONE [Suspect]
     Active Substance: N-ETHYLHEXEDRONE
     Indication: Mental disorder

REACTIONS (10)
  - Loss of consciousness [Unknown]
  - Psychomotor retardation [Unknown]
  - Anxiety [Recovered/Resolved]
  - Persecutory delusion [Recovered/Resolved]
  - Hallucination [Unknown]
  - Asthenia [Unknown]
  - Hyperhidrosis [Unknown]
  - Anhedonia [Unknown]
  - Abulia [Unknown]
  - Toxicity to various agents [Unknown]
